FAERS Safety Report 5756115-9 (Version None)
Quarter: 2008Q2

REPORT INFORMATION
  Report Type: 
  Country: None (occurrence: None)
  Receive Date: 20080528
  Receipt Date: 20080512
  Transmission Date: 20081010
  Serious: Yes (Death)
  Sender: FDA-Public Use
  Company Number: 2008AL004704

PATIENT
  Age: 78 Year
  Sex: Male
  Weight: 54.4316 kg

DRUGS (1)
  1. DIGOXIN [Suspect]
     Indication: CARDIAC DISORDER

REACTIONS (5)
  - ACUTE RESPIRATORY FAILURE [None]
  - DECUBITUS ULCER [None]
  - FALL [None]
  - HIP FRACTURE [None]
  - MALAISE [None]
